FAERS Safety Report 13019824 (Version 1)
Quarter: 2016Q4

REPORT INFORMATION
  Report Type: Spontaneous
  Country: US (occurrence: US)
  Receive Date: 20161212
  Receipt Date: 20161212
  Transmission Date: 20170207
  Serious: No
  Sender: FDA-Public Use
  Company Number: US-ROCHE-1717528

PATIENT
  Sex: Male

DRUGS (5)
  1. VALIUM [Suspect]
     Active Substance: DIAZEPAM
     Indication: INSOMNIA
     Route: 048
     Dates: start: 2015, end: 2015
  2. VESICARE [Concomitant]
     Active Substance: SOLIFENACIN SUCCINATE
  3. BEE POLLEN [Concomitant]
     Active Substance: BEE POLLEN
  4. AMPYRA [Concomitant]
     Active Substance: DALFAMPRIDINE
     Indication: PRIMARY PROGRESSIVE MULTIPLE SCLEROSIS
     Route: 048
     Dates: start: 2009
  5. NITROFURANTOIN. [Concomitant]
     Active Substance: NITROFURANTOIN

REACTIONS (3)
  - Hypotonia [Unknown]
  - Insomnia [Recovering/Resolving]
  - Dysstasia [Unknown]
